FAERS Safety Report 11742308 (Version 1)
Quarter: 2015Q4

REPORT INFORMATION
  Report Type: Spontaneous
  Country: RS (occurrence: RS)
  Receive Date: 20151116
  Receipt Date: 20151116
  Transmission Date: 20160304
  Serious: Yes (Other)
  Sender: FDA-Public Use
  Company Number: RS-TEVA-607230ISR

PATIENT
  Age: 55 Year
  Sex: Female
  Weight: 58 kg

DRUGS (4)
  1. GLUCOSI INFUNDIBILE [Concomitant]
     Indication: OVARIAN CANCER
     Dosage: 23.8095 MILLIGRAM DAILY;
     Route: 041
     Dates: start: 20150817, end: 20150817
  2. DEXASON [Concomitant]
     Indication: PREMEDICATION
     Dosage: .381 MILLIGRAM DAILY;
     Route: 042
     Dates: start: 20150817, end: 20150817
  3. OMEPROL [Concomitant]
     Active Substance: OMEPRAZOLE
     Indication: PREMEDICATION
     Dosage: .9524 MILLIGRAM DAILY;
     Route: 048
     Dates: start: 20150817, end: 20150817
  4. CARBOPLATIN. [Suspect]
     Active Substance: CARBOPLATIN
     Indication: OVARIAN CANCER
     Dosage: 7.1429 MILLIGRAM DAILY;
     Route: 041
     Dates: start: 20150817, end: 20150817

REACTIONS (4)
  - Nausea [Recovered/Resolved]
  - Dyspnoea [Recovered/Resolved]
  - Erythema [Recovered/Resolved]
  - Chills [Recovered/Resolved]

NARRATIVE: CASE EVENT DATE: 20150817
